FAERS Safety Report 6970291-1 (Version None)
Quarter: 2010Q3

REPORT INFORMATION
  Report Type: 
  Country: None (occurrence: None)
  Receive Date: 20100908
  Receipt Date: 20100827
  Transmission Date: 20110219
  Serious: Yes (Death, Other)
  Sender: FDA-Public Use
  Company Number: DE-GENZYME-FABR-1001513

PATIENT

DRUGS (28)
  1. FABRAZYME [Suspect]
     Indication: FABRY'S DISEASE
     Dosage: 1 MG/KG, Q2W
     Route: 042
     Dates: start: 20071101, end: 20100114
  2. FABRAZYME [Suspect]
     Dosage: 35 MG, Q3W
     Route: 042
     Dates: start: 20100216, end: 20100706
  3. FABRAZYME [Suspect]
     Dosage: 0.3 MG/KG, UNK
     Route: 042
  4. BISOPROLOL FUMARATE [Concomitant]
     Indication: HYPERTENSION
     Dosage: UNK
  5. BISOPROLOL FUMARATE [Concomitant]
     Indication: CARDIAC DISORDER
  6. PLAVIX [Concomitant]
     Indication: HAEMODILUTION
     Dosage: UNK
  7. SORTIS [Concomitant]
     Indication: DRUG THERAPY
     Dosage: 20 MG, QD
  8. EINSALPHA [Concomitant]
     Indication: VITAMIN D
     Dosage: 1 MCG, QD
  9. CINACALCET HYDROCHLORIDE [Concomitant]
     Indication: DRUG THERAPY
     Dosage: 60 MG, QD
  10. CPS [Concomitant]
     Indication: DRUG THERAPY
     Dosage: UNK
  11. VITARENAL [Concomitant]
     Indication: VITAMIN SUPPLEMENTATION
     Dosage: UNK
  12. LYRICA [Concomitant]
     Indication: NEURALGIA
     Dosage: 75 MG, QD
  13. NOVAMINSULFON-1A PHARMA [Concomitant]
     Indication: PAIN
     Dosage: UNK
  14. SPIRIVA [Concomitant]
     Indication: BRONCHIAL DISORDER
     Dosage: 18 MCG, QD
  15. ANTI PHOSPHAT [Concomitant]
     Indication: DRUG THERAPY
     Dosage: UNK
  16. PANTOPRAZOL AL [Concomitant]
     Indication: PRODUCT USED FOR UNKNOWN INDICATION
     Dosage: 40 MG, BID
  17. MADOPAR [Concomitant]
     Indication: PRODUCT USED FOR UNKNOWN INDICATION
     Dosage: UNK
  18. CIPRALEX [Concomitant]
     Indication: PRODUCT USED FOR UNKNOWN INDICATION
     Dosage: 10 MG, QD
  19. REMERGIL SOLTAB [Concomitant]
     Indication: PRODUCT USED FOR UNKNOWN INDICATION
     Dosage: 30 MG, QD
  20. SUCRALFATE [Concomitant]
     Indication: PRODUCT USED FOR UNKNOWN INDICATION
     Dosage: UNK
  21. HYDROMORPHONE HCL [Concomitant]
     Indication: ANALGESIC THERAPY
     Dosage: UNK
  22. LACTULOSE [Concomitant]
     Indication: CONSTIPATION
     Dosage: 10 ML, QD
  23. PALLADONE [Concomitant]
     Indication: PRODUCT USED FOR UNKNOWN INDICATION
     Dosage: UNK
  24. NORFLEX [Concomitant]
     Indication: HAEMODIALYSIS
  25. BICANORM [Concomitant]
     Indication: PRODUCT USED FOR UNKNOWN INDICATION
     Dosage: UNK
  26. CLEMASTINE FUMARATE [Concomitant]
     Indication: PRODUCT USED FOR UNKNOWN INDICATION
     Dosage: UNK
  27. CLINDAMYCIN HCL [Concomitant]
     Indication: PRODUCT USED FOR UNKNOWN INDICATION
     Dosage: 300 MG, QID
     Dates: end: 20100620
  28. CIPRO [Concomitant]
     Indication: PRODUCT USED FOR UNKNOWN INDICATION
     Dosage: UNK
     Dates: end: 20100620

REACTIONS (3)
  - ARTERIAL STENOSIS [None]
  - CARDIAC OUTPUT DECREASED [None]
  - RESPIRATORY FAILURE [None]
